FAERS Safety Report 4610673-6 (Version None)
Quarter: 2005Q2

REPORT INFORMATION
  Report Type: 
  Country: None (occurrence: None)
  Receive Date: 20050228
  Receipt Date: 20040318
  Transmission Date: 20051028
  Serious: No
  Sender: FDA-Public Use
  Company Number: 205353

PATIENT
  Age: 12 Year
  Sex: Male
  Weight: 39 kg

DRUGS (1)
  1. NUTROPIN [Suspect]
     Indication: HYPOPITUITARISM
     Dosage: 1.8 MG,QD; SUBCUTANEOUS
     Route: 058
     Dates: start: 20040210

REACTIONS (1)
  - SLIPPED FEMORAL EPIPHYSIS [None]
